FAERS Safety Report 25793980 (Version 2)
Quarter: 2025Q3

REPORT INFORMATION
  Report Type: Spontaneous
  Country: US (occurrence: US)
  Receive Date: 20250912
  Receipt Date: 20250926
  Transmission Date: 20251021
  Serious: No
  Sender: BRISTOL-MYERS SQUIBB COMPANY
  Company Number: US-BRISTOL-MYERS SQUIBB COMPANY-2025-126030

PATIENT
  Age: 78 Year
  Sex: Male
  Weight: 78.47 kg

DRUGS (2)
  1. POMALYST [Suspect]
     Active Substance: POMALIDOMIDE
     Indication: Plasma cell myeloma
     Dosage: ONCE DAILY ON DAYS 1-18 EVERY 28 DAY CYCLE
  2. POMALYST [Suspect]
     Active Substance: POMALIDOMIDE
     Dosage: EVERY OTHER DAY ON DAYS 1-18 OF EACH 28 DAY CYCLE

REACTIONS (2)
  - White blood cell count decreased [Unknown]
  - Platelet count decreased [Recovering/Resolving]
